FAERS Safety Report 7418813-0 (Version None)
Quarter: 2011Q2

REPORT INFORMATION
  Report Type: 
  Country: None (occurrence: None)
  Receive Date: 20110407
  Receipt Date: 20110329
  Transmission Date: 20111010
  Serious: Yes (Hospitalization)
  Sender: FDA-Public Use
  Company Number: 027537

PATIENT
  Sex: Female
  Weight: 43 kg

DRUGS (7)
  1. PANTOLOC [Concomitant]
  2. CIMZIA [Suspect]
     Indication: CROHN'S DISEASE
     Dosage: 400 MG 1X/2 WEEKS, SUBCUTANEOUS; 400 MG 1X/2 WEEKS, SUBCUTANEOUS
     Route: 058
     Dates: start: 20110208
  3. CIMZIA [Suspect]
     Indication: CROHN'S DISEASE
     Dosage: 400 MG 1X/2 WEEKS, SUBCUTANEOUS; 400 MG 1X/2 WEEKS, SUBCUTANEOUS
     Route: 058
     Dates: start: 20090601, end: 20101214
  4. CLONAZEPAM [Concomitant]
  5. METHOTREXATE [Concomitant]
  6. BISOPROLOL [Concomitant]
  7. DILAUDID [Concomitant]

REACTIONS (8)
  - OROPHARYNGEAL PAIN [None]
  - HYPOPHAGIA [None]
  - PHARYNGITIS STREPTOCOCCAL [None]
  - LUNG ABSCESS [None]
  - APHONIA [None]
  - PNEUMONIA [None]
  - NAUSEA [None]
  - WEIGHT DECREASED [None]
